FAERS Safety Report 13390582 (Version 3)
Quarter: 2017Q2

REPORT INFORMATION
  Report Type: Spontaneous
  Country: US (occurrence: US)
  Receive Date: 20170331
  Receipt Date: 20170628
  Transmission Date: 20170830
  Serious: No
  Sender: FDA-Public Use
  Company Number: US-BRISTOL-MYERS SQUIBB COMPANY-BMS-2017-026179

PATIENT
  Age: 60 Year
  Sex: Male

DRUGS (5)
  1. LISINOPRIL. [Concomitant]
     Active Substance: LISINOPRIL
     Indication: HYPERTENSION
     Dosage: 20 MG, UNK
     Route: 048
     Dates: start: 20170428
  2. GLIPIZIDE. [Concomitant]
     Active Substance: GLIPIZIDE
     Indication: DIABETES MELLITUS
     Dosage: 10 MG, UNK
     Route: 048
  3. YERVOY [Suspect]
     Active Substance: IPILIMUMAB
     Indication: MALIGNANT MELANOMA
     Dosage: 1069 MG, 3MG/KG
     Route: 042
     Dates: start: 20170302, end: 20170504
  4. SIMVASTATIN. [Concomitant]
     Active Substance: SIMVASTATIN
     Indication: LIPIDS
     Dosage: 40 MG, UNK
     Route: 048
     Dates: start: 20151210
  5. IBUPROFEN. [Concomitant]
     Active Substance: IBUPROFEN
     Indication: PAIN
     Dosage: 800 MG, UNK
     Route: 048
     Dates: start: 20160310

REACTIONS (5)
  - Hypophysitis [Recovered/Resolved]
  - Pituitary enlargement [Unknown]
  - Blood testosterone decreased [Unknown]
  - Adverse event [Unknown]
  - Headache [Unknown]

NARRATIVE: CASE EVENT DATE: 20170505
